FAERS Safety Report 4448743-8 (Version None)
Quarter: 2004Q3

REPORT INFORMATION
  Report Type: 
  Country: None (occurrence: None)
  Receive Date: 20040909
  Receipt Date: 20040824
  Transmission Date: 20050211
  Serious: Yes (Hospitalization)
  Sender: FDA-Public Use
  Company Number: 6009976

PATIENT
  Age: 71 Year
  Sex: Female

DRUGS (5)
  1. BISOPROLOL FUMARATE [Suspect]
     Indication: HYPERTENSION
     Dosage: 5 MG ORAL
     Route: 048
     Dates: start: 20040611, end: 20040730
  2. PYRIDOXINE HCL [Suspect]
     Indication: VITAMIN SUPPLEMENTATION
     Dosage: 3 DOSAGE FORMS ORLA
     Route: 048
     Dates: start: 20030501, end: 20040730
  3. PRAVASTATIN [Concomitant]
  4. NORVASC [Concomitant]
  5. NU-LOTAN (LOSARTAN POTASSIUM) [Concomitant]

REACTIONS (4)
  - APLASIA PURE RED CELL [None]
  - BLOOD IRON INCREASED [None]
  - DIZZINESS [None]
  - SERUM FERRITIN INCREASED [None]
